FAERS Safety Report 4363698-2 (Version None)
Quarter: 2004Q2

REPORT INFORMATION
  Report Type: 
  Country: None (occurrence: None)
  Receive Date: 20040524
  Receipt Date: 20040130
  Transmission Date: 20050107
  Serious: Yes (Life-Threatening, Hospitalization)
  Sender: FDA-Public Use
  Company Number: FR-ROCHE-357956

PATIENT
  Age: 63 Year
  Sex: Female
  Weight: 59 kg

DRUGS (4)
  1. PEG-INTERFERON ALFA 2A (RO 25-8310) [Suspect]
     Route: 058
     Dates: start: 20030625
  2. RIBAVIRIN [Suspect]
     Route: 048
     Dates: start: 20030625
  3. RIBAVIRIN [Suspect]
     Route: 048
     Dates: start: 20040304
  4. PROGRAF [Concomitant]
     Route: 048
     Dates: start: 20040303

REACTIONS (3)
  - BRONCHOPULMONARY ASPERGILLOSIS [None]
  - LUNG DISORDER [None]
  - TRANSPLANT REJECTION [None]
